FAERS Safety Report 6728472-8 (Version None)
Quarter: 2010Q2

REPORT INFORMATION
  Report Type: 
  Country: None (occurrence: None)
  Receive Date: 20100517
  Receipt Date: 20100504
  Transmission Date: 20101027
  Serious: Yes (Other)
  Sender: FDA-Public Use
  Company Number: US-JNJFOC-20100504781

PATIENT
  Age: 2 Year
  Sex: Female

DRUGS (2)
  1. CONCENTRATED TYLENOL INFANT DROPS [Suspect]
     Route: 048
  2. CONCENTRATED TYLENOL INFANT DROPS [Suspect]
     Indication: PYREXIA
     Dosage: USED AS DIRECTED EVERY 4-6 HOURS
     Route: 048

REACTIONS (2)
  - PRODUCT QUALITY ISSUE [None]
  - VOMITING [None]
